FAERS Safety Report 4819154-8 (Version None)
Quarter: 2005Q4

REPORT INFORMATION
  Report Type: 
  Country: None (occurrence: None)
  Receive Date: 20051101
  Receipt Date: 20051021
  Transmission Date: 20060501
  Serious: Yes (Other)
  Sender: FDA-Public Use
  Company Number: 2005RR-00990

PATIENT
  Age: 64 Year
  Sex: Female

DRUGS (7)
  1. IBUPROFEN [Suspect]
     Dosage: 500 MG, PRN, ORAL
     Route: 048
  2. APONEX (CLOZAPINE) [Suspect]
     Dosage: ORAL
     Route: 048
     Dates: start: 20050720, end: 20050930
  3. VALPROATE SODIUM [Suspect]
     Indication: AFFECTIVE DISORDER
     Dosage: 800 MG, PRN, ORAL
     Route: 048
  4. MESALAMINE [Suspect]
     Indication: PROCTITIS
     Dosage: PARENTERAL
     Route: 051
  5. HYOSCINE HBR HYT [Suspect]
     Indication: SALIVARY HYPERSECRETION
     Dosage: 600 UG, PRN, ORAL
     Route: 048
  6. BECOTIDE [Concomitant]
  7. PROCYCLIDINE HYDROCHLORIDE 2MG TAB [Concomitant]

REACTIONS (2)
  - LEUKOPENIA [None]
  - NEUTROPHIL COUNT DECREASED [None]
